FAERS Safety Report 10360386 (Version 1)
Quarter: 2014Q3

REPORT INFORMATION
  Report Type: Spontaneous
  Country: US (occurrence: US)
  Receive Date: 20140804
  Receipt Date: 20140804
  Transmission Date: 20150326
  Serious: No
  Sender: FDA-Public Use
  Company Number: US-009507513-1407USA010427

PATIENT
  Age: 17 Year
  Weight: 99.32 kg

DRUGS (2)
  1. NEXPLANON [Suspect]
     Active Substance: ETONOGESTREL
     Dosage: ARM
     Route: 059
     Dates: start: 201207, end: 20140721
  2. NEXPLANON [Suspect]
     Active Substance: ETONOGESTREL
     Dosage: ARM
     Route: 059
     Dates: start: 20140721

REACTIONS (4)
  - No adverse event [Unknown]
  - Device breakage [Recovered/Resolved]
  - Implant site fibrosis [Recovered/Resolved]
  - Device difficult to use [Recovered/Resolved]

NARRATIVE: CASE EVENT DATE: 2012
